FAERS Safety Report 24641638 (Version 4)
Quarter: 2025Q2

REPORT INFORMATION
  Report Type: Spontaneous
  Country: US (occurrence: US)
  Receive Date: 20241120
  Receipt Date: 20250611
  Transmission Date: 20250716
  Serious: Yes (Other)
  Sender: ROCHE
  Company Number: US-ROCHE-10000135174

PATIENT
  Sex: Female

DRUGS (1)
  1. XOLAIR [Suspect]
     Active Substance: OMALIZUMAB
     Indication: Idiopathic urticaria
     Dosage: ONGOING, STRENGTH:300MG/2ML
     Route: 058
     Dates: start: 202408

REACTIONS (3)
  - Anaphylactic reaction [Unknown]
  - Feeling abnormal [Unknown]
  - Stress [Unknown]
